FAERS Safety Report 10467603 (Version 4)
Quarter: 2014Q4

REPORT INFORMATION
  Report Type: Spontaneous
  Country: US (occurrence: US)
  Receive Date: 20140922
  Receipt Date: 20141022
  Transmission Date: 20150528
  Serious: Yes (Life-Threatening, Hospitalization, Other)
  Sender: FDA-Public Use
  Company Number: US-009507513-1409USA010401

PATIENT
  Sex: Male
  Weight: 113.38 kg

DRUGS (2)
  1. JANUVIA [Suspect]
     Active Substance: SITAGLIPTIN PHOSPHATE
     Indication: TYPE 2 DIABETES MELLITUS
     Dosage: 100 MG, QD
     Route: 048
     Dates: start: 20120124, end: 20130305
  2. JANUMET [Suspect]
     Active Substance: METFORMIN HYDROCHLORIDE\SITAGLIPTIN PHOSPHATE
     Indication: TYPE 2 DIABETES MELLITUS
     Dosage: 50-1000 MG, BID
     Route: 048
     Dates: start: 20111222, end: 20120121

REACTIONS (23)
  - Metastases to lung [Unknown]
  - Cardiac failure chronic [Not Recovered/Not Resolved]
  - Cardiomyopathy [Unknown]
  - Iron deficiency anaemia [Unknown]
  - Pulmonary hypertension [Unknown]
  - Oedema peripheral [Not Recovered/Not Resolved]
  - Back pain [Not Recovered/Not Resolved]
  - Surgery [Unknown]
  - Cor pulmonale [Unknown]
  - Pancreatic carcinoma metastatic [Unknown]
  - Hypoxia [Unknown]
  - Cardiac pacemaker insertion [Unknown]
  - Hyperlipidaemia [Unknown]
  - Alveolar lung disease [Unknown]
  - Pneumonitis [Unknown]
  - Anaemia macrocytic [Unknown]
  - Cardiac failure congestive [Unknown]
  - Hyponatraemia [Unknown]
  - Eye operation [Unknown]
  - Inappropriate antidiuretic hormone secretion [Recovering/Resolving]
  - Pulmonary toxicity [Unknown]
  - Left ventricular hypertrophy [Unknown]
  - Bladder hypertrophy [Unknown]

NARRATIVE: CASE EVENT DATE: 201208
